FAERS Safety Report 6117642-8 (Version None)
Quarter: 2009Q1

REPORT INFORMATION
  Report Type: 
  Country: None (occurrence: None)
  Receive Date: 20090314
  Receipt Date: 20090121
  Transmission Date: 20090719
  Serious: No
  Sender: FDA-Public Use
  Company Number: US-ABBOTT-09P-163-0499389-00

PATIENT
  Sex: Male
  Weight: 72.64 kg

DRUGS (2)
  1. HUMIRA [Suspect]
     Indication: PSORIASIS
     Dates: start: 20090120, end: 20090120
  2. HUMIRA [Suspect]

REACTIONS (4)
  - DIZZINESS [None]
  - DRY MOUTH [None]
  - INJECTION SITE PAIN [None]
  - NAUSEA [None]
